FAERS Safety Report 21063839 (Version 1)
Quarter: 2022Q3

REPORT INFORMATION
  Report Type: Spontaneous
  Country: US (occurrence: None)
  Receive Date: 20220709
  Receipt Date: 20220709
  Transmission Date: 20221026
  Serious: Yes (Hospitalization)
  Sender: FDA-Public Use
  Company Number: None

PATIENT
  Age: 51 Year
  Sex: Female
  Weight: 76.5 kg

DRUGS (12)
  1. .DELTA.8-TETRAHYDROCANNABINOL\CANNABIDIOL\HERBALS [Suspect]
     Active Substance: .DELTA.8-TETRAHYDROCANNABINOL\CANNABIDIOL\HERBALS
     Indication: Product used for unknown indication
     Dosage: OTHER QUANTITY : 1 1;?
     Route: 048
     Dates: start: 20220708, end: 20220708
  2. SYNTHROID [Concomitant]
     Active Substance: LEVOTHYROXINE SODIUM
  3. AZOR [Concomitant]
     Active Substance: AMLODIPINE BESYLATE\OLMESARTAN MEDOXOMIL
  4. HYDROCHLOROTHIAZIDE [Concomitant]
     Active Substance: HYDROCHLOROTHIAZIDE
  5. ADDERALL [Concomitant]
     Active Substance: AMPHETAMINE ASPARTATE\AMPHETAMINE SULFATE\DEXTROAMPHETAMINE SACCHARATE\DEXTROAMPHETAMINE SULFATE
  6. BUPROPION [Concomitant]
     Active Substance: BUPROPION
  7. UNSPECIFIED INGREDIENT [Concomitant]
     Active Substance: UNSPECIFIED INGREDIENT
  8. DEXTROMETHORPHAN HYDROBROMIDE\GUAIFENESIN [Concomitant]
     Active Substance: DEXTROMETHORPHAN HYDROBROMIDE\GUAIFENESIN
  9. ASHWAGHANDA APPLE CIDER GUMMIES [Concomitant]
  10. STRESS GUMMIES [Concomitant]
  11. COLLAGEN GUMMIES [Concomitant]
  12. SEROVITOL [Concomitant]

REACTIONS (10)
  - Vertigo [None]
  - Vomiting [None]
  - Palpitations [None]
  - Chest pain [None]
  - Gait inability [None]
  - Nausea [None]
  - Tremor [None]
  - Poverty of speech [None]
  - Anxiety [None]
  - Prescription drug used without a prescription [None]

NARRATIVE: CASE EVENT DATE: 20220708
